FAERS Safety Report 10081972 (Version 1)
Quarter: 2014Q2

REPORT INFORMATION
  Report Type: Spontaneous
  Country: US (occurrence: None)
  Receive Date: 20140414
  Receipt Date: 20140414
  Transmission Date: 20141212
  Serious: Yes (Life-Threatening, Hospitalization, Other)
  Sender: FDA-Public Use
  Company Number: ADR-2014-00587

PATIENT
  Age: 61 Year
  Sex: Male

DRUGS (10)
  1. COMPOUNDED BACLOFEN INTRATHECAL 2000 MCG/MG [Suspect]
  2. HYDROMORPHONE INTRATHECAL 7 MG/ML [Suspect]
  3. CLONAZEPAM 1 MG [Suspect]
     Route: 048
  4. COLACE 100 MG [Suspect]
     Route: 048
  5. ERGOCALCIFEROL [Suspect]
  6. HYDROMORPHONE (DILAUDID) 16 MG [Suspect]
     Route: 048
  7. HYDROQUINONE 4% [Suspect]
  8. LISINOPRIL 80 MG [Suspect]
     Route: 048
  9. SEBULEX SHAMPOO [Suspect]
  10. SENNA TABLETS [Suspect]
     Route: 048

REACTIONS (16)
  - Cardiac arrest [None]
  - Somnolence [None]
  - Disorientation [None]
  - Abasia [None]
  - Fall [None]
  - Head injury [None]
  - Somnolence [None]
  - Apnoea [None]
  - Pulse absent [None]
  - Overdose [None]
  - Hypoventilation [None]
  - Hypoxia [None]
  - Blood pressure systolic decreased [None]
  - Mental status changes [None]
  - Device leakage [None]
  - Renal failure acute [None]
